FAERS Safety Report 8164703-8 (Version None)
Quarter: 2012Q1

REPORT INFORMATION
  Report Type: 
  Country: None (occurrence: None)
  Receive Date: 20120227
  Receipt Date: 20120215
  Transmission Date: 20120608
  Serious: No
  Sender: FDA-Public Use
  Company Number: US-BIOGENIDEC-2011BI045437

PATIENT
  Age: 34 Year
  Sex: Female

DRUGS (3)
  1. ACETAMINOPHEN [Concomitant]
     Indication: PREMEDICATION
  2. TYSABRI [Suspect]
     Indication: MULTIPLE SCLEROSIS
     Route: 042
     Dates: start: 20111122
  3. BENADRYL [Concomitant]
     Indication: PREMEDICATION

REACTIONS (4)
  - FATIGUE [None]
  - NAUSEA [None]
  - NASOPHARYNGITIS [None]
  - ABDOMINAL PAIN UPPER [None]
